FAERS Safety Report 21455455 (Version 1)
Quarter: 2022Q4

REPORT INFORMATION
  Report Type: Report from Study
  Country: US (occurrence: US)
  Receive Date: 20221014
  Receipt Date: 20221014
  Transmission Date: 20230113
  Serious: Yes (Hospitalization, Other)
  Sender: FDA-Public Use
  Company Number: US-NOVARTISPH-NVSC2022US229405

PATIENT
  Sex: Male

DRUGS (1)
  1. ENTRESTO [Suspect]
     Active Substance: SACUBITRIL\VALSARTAN
     Indication: Product used for unknown indication
     Dosage: DOSE 24/26MG, TWICE A DAY
     Route: 048

REACTIONS (4)
  - Dyspnoea [Unknown]
  - Leukaemia [Unknown]
  - Myocardial infarction [Unknown]
  - Thrombosis [Unknown]
